FAERS Safety Report 6023536-9 (Version None)
Quarter: 2008Q4

REPORT INFORMATION
  Report Type: 
  Country: None (occurrence: None)
  Receive Date: 20081230
  Receipt Date: 20081222
  Transmission Date: 20090506
  Serious: Yes (Other)
  Sender: FDA-Public Use
  Company Number: PHEH2008US07633

PATIENT

DRUGS (1)
  1. ZOMETA [Suspect]
     Indication: LUNG CANCER METASTATIC
     Dosage: UNK

REACTIONS (3)
  - DENTAL CARE [None]
  - TOOTH ABSCESS [None]
  - TOOTH EXTRACTION [None]
